FAERS Safety Report 24822444 (Version 1)
Quarter: 2025Q1

REPORT INFORMATION
  Report Type: Spontaneous
  Country: US (occurrence: US)
  Receive Date: 20250108
  Receipt Date: 20250108
  Transmission Date: 20250408
  Serious: No
  Sender: AMGEN
  Company Number: US-AMGEN-USASP2024257126

PATIENT
  Age: 56 Year
  Sex: Male

DRUGS (3)
  1. SODIUM PHENYLBUTYRATE [Suspect]
     Active Substance: SODIUM PHENYLBUTYRATE
     Indication: Ornithine transcarbamoylase deficiency
     Route: 065
  2. LACTULOSE [Concomitant]
     Active Substance: LACTULOSE
     Indication: Ornithine transcarbamoylase deficiency
  3. RIFAXIMIN [Concomitant]
     Active Substance: RIFAXIMIN
     Indication: Ornithine transcarbamoylase deficiency

REACTIONS (3)
  - Abdominal distension [Unknown]
  - Abdominal pain [Unknown]
  - Constipation [Unknown]
